FAERS Safety Report 7972495-8 (Version None)
Quarter: 2011Q4

REPORT INFORMATION
  Report Type: 
  Country: None (occurrence: None)
  Receive Date: 20111213
  Receipt Date: 20111129
  Transmission Date: 20120403
  Serious: Yes (Other)
  Sender: FDA-Public Use
  Company Number: NL-PAR PHARMACEUTICAL, INC-2011SCPR003460

PATIENT

DRUGS (5)
  1. LEVETIRACETAM [Suspect]
     Indication: PARTIAL SEIZURES
     Dosage: SHORT TERM COURSE
     Route: 065
  2. VALPROIC ACID [Suspect]
     Indication: CONVULSION
     Dosage: UNK UNK, UNKNOWN
     Route: 065
  3. CARBAMAZEPINE [Suspect]
     Indication: PARTIAL SEIZURES
     Dosage: UNK UNK, UNKNOWN
     Route: 065
  4. VALPROIC ACID [Suspect]
     Dosage: UNDER SUSPECTED DIAGNOSIS OF PARTIAL SEIZURE
     Route: 065
  5. LAMOTRIGINE [Suspect]
     Indication: CONVULSION
     Dosage: UNDER SUSPECTED DIAGNOSIS OF PRIMARY GENERALISED SEIZURE
     Route: 065

REACTIONS (3)
  - ATAXIA [None]
  - MENTAL DISABILITY [None]
  - VISUAL PATHWAY DISORDER [None]
